FAERS Safety Report 8501713-2 (Version None)
Quarter: 2012Q3

REPORT INFORMATION
  Report Type: 
  Country: None (occurrence: None)
  Receive Date: 20120711
  Receipt Date: 20120702
  Transmission Date: 20120928
  Serious: No
  Sender: FDA-Public Use
  Company Number: US-BIOGENIDEC-2012BI023466

PATIENT
  Age: 44 Year
  Sex: Female

DRUGS (1)
  1. TYSABRI [Suspect]
     Indication: MULTIPLE SCLEROSIS
     Route: 042
     Dates: start: 20120524

REACTIONS (9)
  - PARAESTHESIA [None]
  - FATIGUE [None]
  - MUSCULAR WEAKNESS [None]
  - GAIT DISTURBANCE [None]
  - FLUSHING [None]
  - DYSPNOEA [None]
  - HYPOAESTHESIA [None]
  - FEELING HOT [None]
  - ASTHENIA [None]
